FAERS Safety Report 5129177-X (Version None)
Quarter: 2006Q4

REPORT INFORMATION
  Report Type: 
  Country: None (occurrence: None)
  Receive Date: 20061011
  Receipt Date: 20060925
  Transmission Date: 20070319
  Serious: Yes (Hospitalization)
  Sender: FDA-Public Use
  Company Number: FR200605002872

PATIENT
  Age: 84 Year
  Sex: Female
  Weight: 60 kg

DRUGS (6)
  1. ZYPREXA [Suspect]
     Indication: PSYCHOTIC DISORDER
     Dosage: 5 MG, DAILY (1/D), ORAL
     Route: 048
     Dates: start: 20040101, end: 20060401
  2. DIGOXIN [Concomitant]
  3. ACTRAPID HUMAN (INSULIN HUMAN) [Concomitant]
  4. NEULEPTIL (PERICIAZINE) [Concomitant]
  5. ASPIRIN [Concomitant]
  6. PAROXETINE HYDROCHLORIDE [Concomitant]

REACTIONS (9)
  - ACCIDENTAL OVERDOSE [None]
  - BRADYCARDIA [None]
  - CONDITION AGGRAVATED [None]
  - DELUSION [None]
  - DISORIENTATION [None]
  - EXTRASYSTOLES [None]
  - NODAL RHYTHM [None]
  - RALES [None]
  - SINUS ARREST [None]
